FAERS Safety Report 5118366-6 (Version None)
Quarter: 2006Q3

REPORT INFORMATION
  Report Type: 
  Country: None (occurrence: None)
  Receive Date: 20060927
  Receipt Date: 20060914
  Transmission Date: 20061208
  Serious: Yes (Hospitalization)
  Sender: FDA-Public Use
  Company Number: THYR-10305

PATIENT
  Age: 72 Year
  Sex: Female
  Weight: 55 kg

DRUGS (2)
  1. THYROGEN [Suspect]
     Indication: DIAGNOSTIC PROCEDURE
     Dosage: 0.9 MG DAILY IM
     Route: 030
     Dates: start: 20060123, end: 20060124
  2. LEVOTHYROXINE SODIUM [Concomitant]

REACTIONS (1)
  - CEREBROVASCULAR ACCIDENT [None]
